FAERS Safety Report 15377569 (Version 1)
Quarter: 2018Q3

REPORT INFORMATION
  Report Type: Spontaneous
  Country: US (occurrence: US)
  Receive Date: 20180906
  Receipt Date: 20180906
  Transmission Date: 20181010
  Serious: No
  Sender: FDA-Public Use
  Company Number: None

PATIENT
  Age: 40 Year
  Sex: Female

DRUGS (2)
  1. ZOLEDRONIC ACID [Concomitant]
     Active Substance: ZOLEDRONIC ACID
  2. LEUKINE [Suspect]
     Active Substance: SARGRAMOSTIM
     Indication: NEOPLASM MALIGNANT
     Dates: start: 20180820

REACTIONS (5)
  - Myalgia [None]
  - Pyrexia [None]
  - Pain [None]
  - Tremor [None]
  - Asthenia [None]

NARRATIVE: CASE EVENT DATE: 20180906
